FAERS Safety Report 7826558-8 (Version None)
Quarter: 2011Q4

REPORT INFORMATION
  Report Type: 
  Country: None (occurrence: None)
  Receive Date: 20111017
  Receipt Date: 20110930
  Transmission Date: 20120403
  Serious: Yes (Hospitalization, Other)
  Sender: FDA-Public Use
  Company Number: 2010MA005043

PATIENT
  Sex: Female
  Weight: 116.5744 kg

DRUGS (19)
  1. METFORMIN HCL [Concomitant]
  2. LISINOPRIL [Concomitant]
  3. AVANDIA [Concomitant]
  4. MVI AND E [Concomitant]
  5. METROGEL [Concomitant]
  6. GABAPENTIN [Concomitant]
  7. HUMALOG [Concomitant]
  8. MEPROZINE [Concomitant]
  9. FLUOXETINE [Concomitant]
  10. ATENOLOL [Concomitant]
  11. AZITHROMYCIN [Concomitant]
  12. METOCLOPRAMIDE [Suspect]
     Indication: GASTROOESOPHAGEAL REFLUX DISEASE
     Dosage: 10 MG;QID;PO
     Route: 048
     Dates: start: 20080801, end: 20100501
  13. METOCLOPRAMIDE [Suspect]
     Indication: IMPAIRED GASTRIC EMPTYING
     Dosage: 10 MG;QID;PO
     Route: 048
     Dates: start: 20080801, end: 20100501
  14. ZOLPIDEM [Concomitant]
  15. LEXAPRO [Concomitant]
  16. VITAMIN B-12 [Concomitant]
  17. ANTIBIOTICS [Concomitant]
  18. PREMARIN [Concomitant]
  19. VITAMIN B6 [Concomitant]

REACTIONS (32)
  - EXTRAPYRAMIDAL DISORDER [None]
  - BALANCE DISORDER [None]
  - DYSPNOEA EXERTIONAL [None]
  - DYSAESTHESIA [None]
  - TREMOR [None]
  - ECONOMIC PROBLEM [None]
  - DROOLING [None]
  - UNEVALUABLE EVENT [None]
  - MYALGIA [None]
  - WHEEZING [None]
  - IMPAIRED GASTRIC EMPTYING [None]
  - AMIMIA [None]
  - HEPATIC STEATOSIS [None]
  - DIZZINESS [None]
  - HYPOTHYROIDISM [None]
  - CEREBELLAR ATROPHY [None]
  - INJURY [None]
  - ANXIETY [None]
  - CEREBRAL ATROPHY [None]
  - ARTHRALGIA [None]
  - DIABETES MELLITUS INADEQUATE CONTROL [None]
  - COGNITIVE DISORDER [None]
  - EMOTIONAL DISORDER [None]
  - WOUND INFECTION [None]
  - AKATHISIA [None]
  - ABDOMINAL PAIN [None]
  - TARDIVE DYSKINESIA [None]
  - PAIN [None]
  - ABDOMINAL DISCOMFORT [None]
  - DYSTONIA [None]
  - FATIGUE [None]
  - BRONCHITIS [None]
